FAERS Safety Report 17578965 (Version 12)
Quarter: 2022Q4

REPORT INFORMATION
  Report Type: Report from Study
  Country: GB (occurrence: GB)
  Receive Date: 20200324
  Receipt Date: 20221114
  Transmission Date: 20230113
  Serious: Yes (Hospitalization)
  Sender: FDA-Public Use
  Company Number: GB-ROCHE-2552993

PATIENT
  Age: 65 Year
  Sex: Female
  Weight: 80 kg

DRUGS (44)
  1. CARBOPLATIN [Suspect]
     Active Substance: CARBOPLATIN
     Indication: Transitional cell carcinoma
     Dosage: 630 MG (INFUSION)
     Route: 042
     Dates: start: 20200210
  2. PACLITAXEL [Suspect]
     Active Substance: PACLITAXEL
     Indication: Transitional cell carcinoma
     Dosage: 378 MG
     Route: 065
     Dates: start: 20200427
  3. PACLITAXEL [Suspect]
     Active Substance: PACLITAXEL
     Dosage: UNK
  4. BEVACIZUMAB [Suspect]
     Active Substance: BEVACIZUMAB
     Indication: Transitional cell carcinoma
     Dosage: 1100 MG
     Route: 042
     Dates: start: 20200210
  5. BEVACIZUMAB [Suspect]
     Active Substance: BEVACIZUMAB
     Indication: Non-small cell lung cancer
     Dosage: 1200 MG, ONCE EVERY 2 WEEKS
     Route: 042
     Dates: start: 20200210
  6. BEVACIZUMAB [Suspect]
     Active Substance: BEVACIZUMAB
     Dosage: 1200 MG, EVERY 3 WEEKS
     Route: 042
     Dates: start: 20200210
  7. BEVACIZUMAB [Suspect]
     Active Substance: BEVACIZUMAB
     Dosage: 1200 MG, WEEKLY
     Route: 042
     Dates: start: 20200210
  8. ATEZOLIZUMAB [Suspect]
     Active Substance: ATEZOLIZUMAB
     Indication: Transitional cell carcinoma
     Dosage: 1200 MG, EVERY 3 WEEKS
     Route: 041
     Dates: start: 20200210
  9. ATEZOLIZUMAB [Suspect]
     Active Substance: ATEZOLIZUMAB
     Indication: Non-small cell lung cancer
     Dosage: 1200 MG, EVERY 3 WEEKS
     Route: 041
     Dates: start: 20200309
  10. ATEZOLIZUMAB [Suspect]
     Active Substance: ATEZOLIZUMAB
     Dosage: 1200 MG, EVERY 3 WEEKS
     Route: 041
     Dates: start: 20200406
  11. ATEZOLIZUMAB [Suspect]
     Active Substance: ATEZOLIZUMAB
     Dosage: 1200 MG, EVERY 3 WEEKS
     Route: 041
     Dates: start: 20200427
  12. ATEZOLIZUMAB [Suspect]
     Active Substance: ATEZOLIZUMAB
     Dosage: 1200 MG, EVERY 3 WEEKS
     Route: 041
     Dates: start: 20200518
  13. ATEZOLIZUMAB [Suspect]
     Active Substance: ATEZOLIZUMAB
     Dosage: 1200 MG, EVERY 3 WEEKS
     Route: 041
     Dates: start: 20200608
  14. ATEZOLIZUMAB [Suspect]
     Active Substance: ATEZOLIZUMAB
     Dosage: 1200 MG, EVERY 3 WEEKS
     Route: 041
     Dates: start: 20200625
  15. DIHYDROCODEINE BITARTRATE [Suspect]
     Active Substance: DIHYDROCODEINE BITARTRATE
     Indication: Visual impairment
     Dosage: 1 DF, 1X/DAY
     Route: 065
  16. ACYCLOVIR [Concomitant]
     Active Substance: ACYCLOVIR
     Dosage: UNK, 3X/DAY
     Route: 065
     Dates: start: 20200402, end: 20200404
  17. BUTYLSCOPOLAMINE BROMIDE [Concomitant]
     Active Substance: BUTYLSCOPOLAMINE BROMIDE
     Indication: Pain
     Dosage: UNK
  18. CALCIUM [Concomitant]
     Active Substance: CALCIUM
     Indication: Product used for unknown indication
     Dosage: UNK
     Route: 065
     Dates: start: 20210504
  19. CEFUROXIME [Concomitant]
     Active Substance: CEFUROXIME
     Indication: Product used for unknown indication
     Route: 065
  20. CHLORHEXIDINE [Concomitant]
     Active Substance: CHLORHEXIDINE
     Indication: Hiatus hernia
     Dosage: UNK
  21. CLEMASTINE FUMARATE [Concomitant]
     Active Substance: CLEMASTINE FUMARATE
     Indication: Product used for unknown indication
     Dosage: UNK
     Route: 065
     Dates: start: 20210509
  22. CHOLECALCIFEROL [Concomitant]
     Active Substance: CHOLECALCIFEROL
     Indication: Product used for unknown indication
     Dosage: UNK
     Route: 065
     Dates: start: 20210504
  23. DAPSONE [Concomitant]
     Active Substance: DAPSONE
     Indication: Product used for unknown indication
     Route: 065
  24. DEXAMETHASONE [Concomitant]
     Active Substance: DEXAMETHASONE
     Indication: Headache
     Dosage: UNK, 1X/DAY
     Route: 065
     Dates: start: 20200625
  25. FLUTICASONE FUROATE [Concomitant]
     Active Substance: FLUTICASONE FUROATE
     Indication: Product used for unknown indication
     Dosage: UNK
     Route: 065
     Dates: start: 20210708
  26. GELCLAIR [ENOXOLONE;HYALURONATE SODIUM;POVIDONE] [Concomitant]
     Dosage: UNK
     Route: 065
     Dates: start: 20200407, end: 20200409
  27. HYDROCORTISONE [Concomitant]
     Active Substance: HYDROCORTISONE
     Indication: Product used for unknown indication
     Dosage: UNK
     Route: 065
     Dates: start: 20210715
  28. LANSOPRAZOLE [Concomitant]
     Active Substance: LANSOPRAZOLE
     Dosage: UNK
  29. LOPERAMIDE [Concomitant]
     Active Substance: LOPERAMIDE
     Dosage: UNK
     Route: 065
     Dates: start: 20210518
  30. METOCLOPRAMIDE [Concomitant]
     Active Substance: METOCLOPRAMIDE
     Indication: Pain
     Dosage: UNK, 3X/DAY
     Route: 065
     Dates: start: 20200214, end: 20200222
  31. METOCLOPRAMIDE [Concomitant]
     Active Substance: METOCLOPRAMIDE
     Dosage: UNK
     Route: 065
     Dates: start: 20210509
  32. MICONAZOLE NITRATE [Concomitant]
     Active Substance: MICONAZOLE NITRATE
     Indication: Product used for unknown indication
     Dosage: UNK
     Route: 065
     Dates: start: 20210715
  33. MORPHINE SULFATE [Concomitant]
     Active Substance: MORPHINE SULFATE
  34. NITROFURANTOIN [Concomitant]
     Active Substance: NITROFURANTOIN
     Indication: Hiatus hernia
     Dosage: 1 DF, 1X/DAY
     Route: 065
     Dates: start: 20200204
  35. ONDANSETRON [Concomitant]
     Active Substance: ONDANSETRON
     Dosage: 8 MG
     Route: 065
     Dates: start: 20220210, end: 20220210
  36. OXETACAINE [Concomitant]
     Active Substance: OXETHAZAINE
     Indication: Mucosal inflammation
     Dosage: UNK
     Route: 065
     Dates: start: 20200221
  37. OXETACAINE [Concomitant]
     Active Substance: OXETHAZAINE
     Indication: Mucosal inflammation
  38. ACETAMINOPHEN [Concomitant]
     Active Substance: ACETAMINOPHEN
     Indication: Pain
     Dosage: UNK, AS NEEDED
     Route: 065
  39. AMDINOCILLIN PIVOXIL [Concomitant]
     Active Substance: AMDINOCILLIN PIVOXIL
     Indication: Product used for unknown indication
     Route: 065
  40. POTASSIUM CHLORIDE [Concomitant]
     Active Substance: POTASSIUM CHLORIDE
     Indication: Product used for unknown indication
     Dosage: UNK
     Route: 065
     Dates: start: 20210308
  41. PRAMIPEXOLE [Concomitant]
     Active Substance: PRAMIPEXOLE
     Indication: Product used for unknown indication
     Dosage: UNK
     Route: 065
     Dates: start: 20120823
  42. ALBUTEROL [Concomitant]
     Active Substance: ALBUTEROL
     Indication: Product used for unknown indication
     Dosage: UNK
     Route: 065
     Dates: start: 20210708
  43. VILANTEROL TRIFENATATE [Concomitant]
     Active Substance: VILANTEROL TRIFENATATE
     Indication: Product used for unknown indication
     Dosage: UNK
     Route: 065
     Dates: start: 20210708
  44. ORAMORPH SR SUSTAINED RELEASE [Concomitant]
     Active Substance: MORPHINE SULFATE
     Indication: Pain
     Dosage: UNK

REACTIONS (3)
  - Abdominal pain [Recovered/Resolved]
  - Abdominal pain [Not Recovered/Not Resolved]
  - Constipation [Recovered/Resolved]

NARRATIVE: CASE EVENT DATE: 20200214
